FAERS Safety Report 12612799 (Version 2)
Quarter: 2016Q3

REPORT INFORMATION
  Report Type: Spontaneous
  Country: US (occurrence: US)
  Receive Date: 20160801
  Receipt Date: 20160803
  Transmission Date: 20161109
  Serious: No
  Sender: FDA-Public Use
  Company Number: US-009507513-1607USA008867

PATIENT
  Sex: Male

DRUGS (9)
  1. INTRON A [Suspect]
     Active Substance: INTERFERON ALFA-2B
     Dosage: 23 MU, EVERY MONDAY, WEDNESDAY AND FRIDAY
     Route: 058
     Dates: start: 2016
  2. ALLOPURINOL. [Concomitant]
     Active Substance: ALLOPURINOL
  3. COMPAZINE [Concomitant]
     Active Substance: PROCHLORPERAZINE MALEATE
  4. PRINIVIL [Concomitant]
     Active Substance: LISINOPRIL
  5. CELEXA [Concomitant]
     Active Substance: CITALOPRAM HYDROBROMIDE
  6. INTRON A [Suspect]
     Active Substance: INTERFERON ALFA-2B
     Indication: ONCOLOGIC COMPLICATION
     Dosage: 23 MU, EVERY MONDAY, WEDNESDAY AND FRIDAY
     Route: 058
     Dates: start: 20160324, end: 2016
  7. NAPROXEN. [Concomitant]
     Active Substance: NAPROXEN
  8. RESTORIL [Concomitant]
     Active Substance: TEMAZEPAM
  9. INDOCIN [Concomitant]
     Active Substance: INDOMETHACIN\INDOMETHACIN SODIUM

REACTIONS (2)
  - Vomiting [Unknown]
  - Headache [Unknown]

NARRATIVE: CASE EVENT DATE: 2016
